FAERS Safety Report 6958063-5 (Version None)
Quarter: 2010Q3

REPORT INFORMATION
  Report Type: 
  Country: None (occurrence: None)
  Receive Date: 20100831
  Receipt Date: 20100826
  Transmission Date: 20110219
  Serious: Yes (Hospitalization)
  Sender: FDA-Public Use
  Company Number: US-BRISTOL-MYERS SQUIBB COMPANY-15011927

PATIENT
  Age: 52 Year
  Sex: Female
  Weight: 68 kg

DRUGS (8)
  1. IXABEPILONE [Suspect]
     Indication: BREAST CANCER
     Dosage: 20 MG/M2; C1D8
     Dates: start: 20100217, end: 20100224
  2. CARBOPLATIN [Suspect]
     Indication: BREAST CANCER
     Dosage: 1DF- 2.5 AUC C1D8
     Dates: start: 20100217, end: 20100224
  3. FLEXERIL [Concomitant]
     Dosage: TAB; PRN
     Route: 048
  4. MORPHINE [Concomitant]
     Indication: PAIN
     Dosage: TAB; PRN
     Route: 048
  5. MS CONTIN [Concomitant]
     Dosage: TAB; TOTAL= 45MG Q12 H
     Route: 048
  6. PHENERGAN [Concomitant]
     Indication: NAUSEA
     Route: 048
  7. REGLAN [Concomitant]
     Indication: NAUSEA
     Dosage: TAB; Q4-6H PRN
     Route: 048
  8. SENOKOT [Concomitant]
     Route: 048

REACTIONS (3)
  - CONSTIPATION [None]
  - FATIGUE [None]
  - PAIN [None]
